FAERS Safety Report 9897709 (Version 1)
Quarter: 2014Q1

REPORT INFORMATION
  Report Type: Spontaneous
  Country: US (occurrence: US)
  Receive Date: 20140214
  Receipt Date: 20140214
  Transmission Date: 20141002
  Serious: Yes (Other)
  Sender: FDA-Public Use
  Company Number: US-SA-2014SA017506

PATIENT
  Age: 48 Year
  Sex: Female

DRUGS (1)
  1. HECTOROL [Suspect]
     Indication: RENAL FAILURE CHRONIC
     Route: 065
     Dates: start: 201401

REACTIONS (2)
  - Hot flush [Recovered/Resolved]
  - Pruritus [Recovered/Resolved]
